FAERS Safety Report 4595091-1 (Version None)
Quarter: 2005Q1

REPORT INFORMATION
  Report Type: 
  Country: None (occurrence: None)
  Receive Date: 20050223
  Receipt Date: 20050215
  Transmission Date: 20050727
  Serious: Yes (Hospitalization, Other)
  Sender: FDA-Public Use
  Company Number: GBWYE430316FEB05

PATIENT
  Age: 28 Year
  Sex: Female

DRUGS (3)
  1. ANADIN ULTRA (IBUPROFEN, CAPSULE, LIQUID FILLED) [Suspect]
     Dosage: 2 LIQUID CAPSULES;
  2. VENTOLIN (SALBUTAMOL SULFATE) [Concomitant]
  3. UNSPECIFIED ANTIHISTAMINE [Concomitant]

REACTIONS (3)
  - ANAPHYLACTIC SHOCK [None]
  - ANGIONEUROTIC OEDEMA [None]
  - RESPIRATORY DISORDER [None]
